FAERS Safety Report 8459210-9 (Version None)
Quarter: 2012Q2

REPORT INFORMATION
  Report Type: 
  Country: None (occurrence: None)
  Receive Date: 20120622
  Receipt Date: 20120621
  Transmission Date: 20120825
  Serious: Yes (Other)
  Sender: FDA-Public Use
  Company Number: BR-ROCHE-1080673

PATIENT
  Sex: Female
  Weight: 52 kg

DRUGS (1)
  1. BONIVA [Suspect]
     Indication: OSTEOPOROSIS

REACTIONS (3)
  - EYE HAEMORRHAGE [None]
  - VISUAL ACUITY REDUCED [None]
  - GLAUCOMA [None]
